FAERS Safety Report 23824567 (Version 1)
Quarter: 2024Q2

REPORT INFORMATION
  Report Type: Report from Study
  Country: MX (occurrence: MX)
  Receive Date: 20240507
  Receipt Date: 20240507
  Transmission Date: 20240715
  Serious: Yes (Other)
  Sender: FDA-Public Use
  Company Number: MX-AstraZeneca-2024A104809

PATIENT
  Age: 562 Day
  Sex: Female
  Weight: 10.4 kg

DRUGS (9)
  1. SYNAGIS [Suspect]
     Active Substance: PALIVIZUMAB
     Indication: Respiratory syncytial virus infection
     Dosage: 1.3 ML MONTHLY
     Route: 030
     Dates: start: 20231013, end: 20231013
  2. SYNAGIS [Suspect]
     Active Substance: PALIVIZUMAB
     Dosage: 1.4 ML MONTHLY
     Route: 030
     Dates: start: 20231108, end: 20231108
  3. SYNAGIS [Suspect]
     Active Substance: PALIVIZUMAB
     Dosage: 1.4 ML MONTHLY
     Route: 030
     Dates: start: 20231205, end: 20231205
  4. SYNAGIS [Suspect]
     Active Substance: PALIVIZUMAB
     Dosage: 1 ML MONTHLY
     Route: 030
     Dates: start: 20240123, end: 20240123
  5. SYNAGIS [Suspect]
     Active Substance: PALIVIZUMAB
     Dosage: 1.6 ML MONTHLY
     Route: 030
     Dates: start: 20240220, end: 20240220
  6. CEPHALEXIN [Concomitant]
     Active Substance: CEPHALEXIN
     Indication: Product used for unknown indication
  7. PREDNISOLONE [Concomitant]
     Active Substance: PREDNISOLONE
     Indication: Product used for unknown indication
  8. AMBROXOL [Concomitant]
     Active Substance: AMBROXOL
     Indication: Product used for unknown indication
  9. LARIMOT [Concomitant]
     Indication: Product used for unknown indication

REACTIONS (1)
  - Seizure [Recovered/Resolved]

NARRATIVE: CASE EVENT DATE: 20240401
